FAERS Safety Report 23321204 (Version 2)
Quarter: 2024Q1

REPORT INFORMATION
  Report Type: Report from Study
  Country: US (occurrence: None)
  Receive Date: 20231220
  Receipt Date: 20240131
  Transmission Date: 20240409
  Serious: No
  Sender: FDA-Public Use
  Company Number: 2023A236938

PATIENT
  Age: 72 Year
  Sex: Female

DRUGS (13)
  1. CALQUENCE [Suspect]
     Active Substance: ACALABRUTINIB
     Indication: B-cell lymphoma
     Route: 048
     Dates: start: 20210109
  2. METOPROLOL TARTRATE [Suspect]
     Active Substance: METOPROLOL TARTRATE
     Route: 048
  3. ACALABRUTINIB [Concomitant]
     Active Substance: ACALABRUTINIB
  4. ASPIRIN [Concomitant]
     Active Substance: ASPIRIN
  5. ANORO ELLIPTA [Concomitant]
     Active Substance: UMECLIDINIUM BROMIDE\VILANTEROL TRIFENATATE
     Dosage: 62.5 MCG-25 MCG/INH INHALATION POWDER
  6. BUPROPION [Concomitant]
     Active Substance: BUPROPION
     Dosage: 150 MG/24 HOURS
  7. CELECOXIB [Concomitant]
     Active Substance: CELECOXIB
  8. GRALISE [Concomitant]
     Active Substance: GABAPENTIN
     Dosage: 600 MG/24 HOURS
  9. ISOSORBIDE MONONITRATE [Concomitant]
     Active Substance: ISOSORBIDE MONONITRATE
  10. LORAZEPAM [Concomitant]
     Active Substance: LORAZEPAM
  11. MEMANTINE [Concomitant]
     Active Substance: MEMANTINE
  12. MORPHINE [Concomitant]
     Active Substance: MORPHINE
     Dosage: 15MG/8 HR
  13. GABAPENTIN [Concomitant]
     Active Substance: GABAPENTIN

REACTIONS (1)
  - Obesity [Unknown]

NARRATIVE: CASE EVENT DATE: 20210101
